FAERS Safety Report 8247141-9 (Version None)
Quarter: 2012Q1

REPORT INFORMATION
  Report Type: 
  Country: None (occurrence: None)
  Receive Date: 20120330
  Receipt Date: 20120321
  Transmission Date: 20120608
  Serious: Yes (Other)
  Sender: FDA-Public Use
  Company Number: US-JNJFOC-20120310740

PATIENT
  Sex: Female
  Weight: 82.1 kg

DRUGS (2)
  1. REMICADE [Suspect]
     Dosage: DOSE: 800 (UNITS UNSPECIFIED)
     Route: 042
     Dates: start: 20120209
  2. REMICADE [Suspect]
     Indication: RHEUMATOID ARTHRITIS
     Dosage: DOSE: 400 (UNITS UNSPECIFIED)
     Route: 042
     Dates: end: 20111201

REACTIONS (4)
  - LUMBAR VERTEBRAL FRACTURE [None]
  - OSTEOPOROSIS [None]
  - THORACIC VERTEBRAL FRACTURE [None]
  - ASTHENIA [None]
